FAERS Safety Report 5269859-2 (Version None)
Quarter: 2007Q1

REPORT INFORMATION
  Report Type: 
  Country: None (occurrence: None)
  Receive Date: 20070320
  Receipt Date: 20070312
  Transmission Date: 20070707
  Serious: Yes (Hospitalization)
  Sender: FDA-Public Use
  Company Number: JP-JPN-A200700177

PATIENT
  Age: 50 Year
  Sex: Male

DRUGS (7)
  1. VALTREX [Suspect]
     Indication: HERPES ZOSTER
     Dosage: 500MG THREE TIMES PER DAY
     Route: 048
     Dates: start: 20070109, end: 20070112
  2. RENAGEL [Concomitant]
     Route: 048
  3. PROTECADIN [Concomitant]
     Route: 048
  4. ADALAT [Concomitant]
     Route: 048
  5. TANATRIL [Concomitant]
     Route: 048
  6. DIOVAN [Concomitant]
     Route: 048
  7. CARDENALIN [Concomitant]
     Route: 048

REACTIONS (3)
  - BLOOD PRESSURE DECREASED [None]
  - DYSARTHRIA [None]
  - HEARING IMPAIRED [None]
